FAERS Safety Report 5042471-6 (Version None)
Quarter: 2006Q3

REPORT INFORMATION
  Report Type: 
  Country: None (occurrence: None)
  Receive Date: 20060705
  Receipt Date: 20060623
  Transmission Date: 20061208
  Serious: Yes (Other)
  Sender: FDA-Public Use
  Company Number: PHBS2006IT09588

PATIENT
  Age: 44 Year
  Sex: Female

DRUGS (6)
  1. PAMIDRONATE DISODIUM [Suspect]
     Indication: MULTIPLE MYELOMA
     Dosage: 90 MG, QMO
     Route: 042
  2. ZOLEDRONATE [Suspect]
     Indication: MULTIPLE MYELOMA
     Dosage: 4 MG, QMO
     Route: 042
  3. VINCRISTINE + ADRIAMYCIN + DEXAMETHASONE [Concomitant]
     Route: 065
  4. MELPHALAN [Concomitant]
     Dosage: HIGH-DOSE
     Route: 065
  5. HEMATOPOETIC PROGENITOR CELLS HUMAN [Concomitant]
     Dosage: PERIPHERAL BLOOD STEM CELL TRANSPLANTATION
     Route: 065
  6. THALIDOMIDE [Concomitant]
     Route: 065

REACTIONS (8)
  - BONE DISORDER [None]
  - HYPOAESTHESIA [None]
  - IMPAIRED HEALING [None]
  - OSTEONECROSIS [None]
  - PAIN [None]
  - TOOTH ABSCESS [None]
  - TOOTH EXTRACTION [None]
  - WOUND TREATMENT [None]
